FAERS Safety Report 11589350 (Version 1)
Quarter: 2015Q4

REPORT INFORMATION
  Report Type: Spontaneous
  Country: US (occurrence: None)
  Receive Date: 20151001
  Receipt Date: 20151001
  Transmission Date: 20160304
  Serious: No
  Sender: FDA-Public Use
  Company Number: None

PATIENT
  Sex: Male

DRUGS (2)
  1. BENEFIX [Suspect]
     Active Substance: COAGULATION FACTOR IX RECOMBINANT HUMAN\ISOPROPYL ALCOHOL
     Indication: FACTOR IX DEFICIENCY
     Dosage: 4380 UNITS; DAILY PM EARLY JOINT/SOFT TISSUE
     Route: 042
  2. BENEFIX [Suspect]
     Active Substance: COAGULATION FACTOR IX RECOMBINANT HUMAN\ISOPROPYL ALCOHOL
     Indication: FACTOR IX DEFICIENCY
     Dosage: 4380 UNITS; DAILY PM EARLY JOINT/SOFT TISSUE
     Route: 042

REACTIONS (6)
  - Chest pain [None]
  - Abdominal pain [None]
  - Infusion related reaction [None]
  - Muscle spasms [None]
  - Nausea [None]
  - Cold sweat [None]
